FAERS Safety Report 5506731-4 (Version None)
Quarter: 2007Q4

REPORT INFORMATION
  Report Type: 
  Country: None (occurrence: None)
  Receive Date: 20071105
  Receipt Date: 20071023
  Transmission Date: 20080405
  Serious: Yes (Hospitalization, Other)
  Sender: FDA-Public Use
  Company Number: BR-AMGEN-US247391

PATIENT
  Sex: Male

DRUGS (6)
  1. PANITUMUMAB [Suspect]
     Indication: COLORECTAL CANCER
     Route: 042
     Dates: start: 20070904
  2. OXALIPLATIN [Concomitant]
     Route: 065
  3. LEUCOVORIN [Concomitant]
     Route: 065
  4. FLUOROURACIL [Concomitant]
     Route: 065
  5. DIAZEPAM [Concomitant]
     Route: 048
  6. OMEPRAZOLE [Concomitant]
     Route: 048

REACTIONS (2)
  - DIARRHOEA [None]
  - NEUTROPENIA [None]
